FAERS Safety Report 10360777 (Version 1)
Quarter: 2014Q3

REPORT INFORMATION
  Report Type: Spontaneous
  Country: US (occurrence: None)
  Receive Date: 20140731
  Receipt Date: 20140731
  Transmission Date: 20150326
  Serious: Yes (Congenital Anomaly, Other)
  Sender: FDA-Public Use
  Company Number: 2014AP003728

PATIENT
  Age: 0 Day
  Sex: Male

DRUGS (2)
  1. PAROXETINE HYDROCHLORIDE ( PAROXETINE) TABLET [Suspect]
     Active Substance: PAROXETINE HYDROCHLORIDE
     Indication: ANXIETY
     Route: 064
  2. PAROXETINE HYDROCHLORIDE ( PAROXETINE) TABLET [Suspect]
     Active Substance: PAROXETINE HYDROCHLORIDE
     Indication: DEPRESSION
     Route: 064

REACTIONS (6)
  - Patent ductus arteriosus [None]
  - Maternal drugs affecting foetus [None]
  - Aortic valve incompetence [None]
  - Mitral valve incompetence [None]
  - Transposition of the great vessels [None]
  - Atrial septal defect [None]

NARRATIVE: CASE EVENT DATE: 20071010
